FAERS Safety Report 5877460-2 (Version None)
Quarter: 2008Q3

REPORT INFORMATION
  Report Type: 
  Country: None (occurrence: None)
  Receive Date: 20080909
  Receipt Date: 20080902
  Transmission Date: 20090109
  Serious: Yes (Hospitalization)
  Sender: FDA-Public Use
  Company Number: TPA2008A01396

PATIENT
  Age: 51 Year
  Sex: Female

DRUGS (3)
  1. ACTOS [Suspect]
     Indication: TYPE 2 DIABETES MELLITUS
     Dosage: 15 MG, 1 IN 1 D, PER ORAL
     Route: 048
     Dates: start: 20080801, end: 20080801
  2. METAGLIP (METFORMIN HYDROCHLORIDE, GLIPIZIDE) [Concomitant]
  3. UNKNOWN HYPERTENSION MEDICATION (ANTIHYPERTENSIVES) [Concomitant]

REACTIONS (1)
  - MYOCARDIAL INFARCTION [None]
